FAERS Safety Report 13315948 (Version 28)
Quarter: 2018Q3

REPORT INFORMATION
  Report Type: Report from Study
  Country: DE (occurrence: DE)
  Receive Date: 20170310
  Receipt Date: 20180730
  Transmission Date: 20181010
  Serious: Yes (Death, Other)
  Sender: FDA-Public Use
  Company Number: DE-BRISTOL-MYERS SQUIBB COMPANY-BMS-2017-019255

PATIENT
  Age: 65 Year
  Sex: Female

DRUGS (8)
  1. PANTOPRAZOL [Concomitant]
     Active Substance: PANTOPRAZOLE SODIUM
     Indication: PRODUCT USED FOR UNKNOWN INDICATION
     Dosage: 40 MG, UNK
     Route: 065
     Dates: start: 20161213
  2. PREDNISOLONE. [Concomitant]
     Active Substance: PREDNISOLONE
     Indication: PRODUCT USED FOR UNKNOWN INDICATION
     Dosage: 16 MG, UNK
     Route: 065
     Dates: start: 20170303, end: 20170313
  3. IBUPROFEN. [Concomitant]
     Active Substance: IBUPROFEN
     Indication: PAIN
     Dosage: 1 DF, PRN
     Route: 065
     Dates: start: 20170606
  4. NIVOLUMAB [Suspect]
     Active Substance: NIVOLUMAB
     Indication: NON-SMALL CELL LUNG CANCER
     Dosage: 3 MG/KG, Q2WK
     Route: 042
     Dates: start: 20170216
  5. ACC                                /00082801/ [Concomitant]
     Active Substance: ACETYLCYSTEINE
     Indication: PAIN
     Dosage: UNK
     Route: 065
     Dates: start: 20170310
  6. PREDNISOLONE. [Concomitant]
     Active Substance: PREDNISOLONE
     Indication: PRODUCT USED FOR UNKNOWN INDICATION
     Dosage: 10 MG, UNK
     Route: 065
     Dates: start: 20170313
  7. NOVAMINSULFON [Concomitant]
     Active Substance: METAMIZOLE
     Indication: MALIGNANT NEOPLASM PROGRESSION
     Dosage: UNK
     Route: 065
  8. MCP [Concomitant]
     Active Substance: METOCLOPRAMIDE HYDROCHLORIDE
     Indication: PRODUCT USED FOR UNKNOWN INDICATION
     Dosage: UNK
     Route: 065
     Dates: start: 20170817

REACTIONS (19)
  - Cholangitis [Recovered/Resolved]
  - Diarrhoea [Recovered/Resolved]
  - Weight decreased [Not Recovered/Not Resolved]
  - Dermatitis [Not Recovered/Not Resolved]
  - Dysgeusia [Recovered/Resolved]
  - Dyspnoea [Recovered/Resolved]
  - Bone pain [Recovered/Resolved]
  - Death [Fatal]
  - Hyperthyroidism [Not Recovered/Not Resolved]
  - Peripheral arterial occlusive disease [Not Recovered/Not Resolved]
  - Oedema [Recovered/Resolved]
  - Raynaud^s phenomenon [Not Recovered/Not Resolved]
  - Decreased appetite [Not Recovered/Not Resolved]
  - Pneumonitis [Recovered/Resolved]
  - Nausea [Recovered/Resolved]
  - Hypertension [Not Recovered/Not Resolved]
  - Hypoaesthesia [Recovered/Resolved]
  - Fatigue [Not Recovered/Not Resolved]
  - Weight increased [Not Recovered/Not Resolved]

NARRATIVE: CASE EVENT DATE: 20170216
